FAERS Safety Report 20364952 (Version 5)
Quarter: 2022Q4

REPORT INFORMATION
  Report Type: Report from Study
  Country: US (occurrence: US)
  Receive Date: 20220122
  Receipt Date: 20221011
  Transmission Date: 20230113
  Serious: Yes (Hospitalization, Other)
  Sender: FDA-Public Use
  Company Number: NVSC2022US008625

PATIENT
  Sex: Female

DRUGS (2)
  1. GILENYA [Suspect]
     Active Substance: FINGOLIMOD HYDROCHLORIDE
     Indication: Multiple sclerosis
     Dosage: 0.5 MG, QD
     Route: 048
  2. MELATONIN [Concomitant]
     Active Substance: MELATONIN
     Indication: Product used for unknown indication
     Dosage: UNK
     Route: 065

REACTIONS (10)
  - Tremor [Unknown]
  - Mobility decreased [Unknown]
  - Asthenia [Unknown]
  - Schizophrenia [Unknown]
  - Cardiac failure [Unknown]
  - Multiple sclerosis [Unknown]
  - Visual impairment [Unknown]
  - Movement disorder [Unknown]
  - Balance disorder [Unknown]
  - Fall [Unknown]
